FAERS Safety Report 9200139 (Version 5)
Quarter: 2013Q2

REPORT INFORMATION
  Report Type: Report from Study
  Country: DE (occurrence: DE)
  Receive Date: 20130329
  Receipt Date: 20130619
  Transmission Date: 20140414
  Serious: Yes (Death, Hospitalization)
  Sender: FDA-Public Use
  Company Number: DE-ROCHE-1194683

PATIENT
  Age: 52 Year
  Sex: Female
  Weight: 71 kg

DRUGS (2)
  1. TRASTUZUMAB EMTANSINE [Suspect]
     Indication: BREAST CANCER METASTATIC
     Dosage: DOSE: 3.6MG/KG
     Route: 042
     Dates: start: 20130215, end: 20130225
  2. TRASTUZUMAB EMTANSINE [Suspect]
     Dosage: DOSE REDUCED TO 3MG/KG.
     Route: 042
     Dates: start: 20130311

REACTIONS (4)
  - Pleural effusion [Fatal]
  - Dyspnoea [Recovered/Resolved]
  - Hepatic enzyme increased [Not Recovered/Not Resolved]
  - Liver disorder [Not Recovered/Not Resolved]
